FAERS Safety Report 8241965-X (Version None)
Quarter: 2012Q1

REPORT INFORMATION
  Report Type: 
  Country: None (occurrence: None)
  Receive Date: 20120329
  Receipt Date: 20120320
  Transmission Date: 20120608
  Serious: Yes (Hospitalization)
  Sender: FDA-Public Use
  Company Number: IE-BIOGENIDEC-2012BI003820

PATIENT
  Age: 59 Year
  Sex: Female

DRUGS (8)
  1. OXYCODONE HCL [Concomitant]
     Route: 048
     Dates: start: 20110924, end: 20110924
  2. TYSABRI [Suspect]
     Indication: MULTIPLE SCLEROSIS
     Route: 042
     Dates: start: 20070316, end: 20110727
  3. CALCIUM CARBONATE [Concomitant]
     Route: 048
  4. OMEPRAZOLE [Concomitant]
     Route: 048
  5. ENOXAPARIN SODIUM [Concomitant]
     Route: 058
     Dates: start: 20110924, end: 20111014
  6. SLOW-K [Concomitant]
     Route: 048
  7. HYDROCORTISONE [Concomitant]
     Route: 042
  8. DELTACORTRIL [Concomitant]
     Route: 048

REACTIONS (2)
  - AUTOIMMUNE PANCREATITIS [None]
  - AUTOIMMUNE DISORDER [None]
